FAERS Safety Report 5722937-3 (Version None)
Quarter: 2008Q2

REPORT INFORMATION
  Report Type: 
  Country: None (occurrence: None)
  Receive Date: 20080430
  Receipt Date: 20080423
  Transmission Date: 20081010
  Serious: Yes (Death)
  Sender: FDA-Public Use
  Company Number: US-SP-2008-01006

PATIENT
  Age: 57 Year
  Sex: Female

DRUGS (1)
  1. BOTULISM AB [Suspect]
     Indication: BOTULISM
     Route: 065
     Dates: start: 20071110

REACTIONS (2)
  - CARDIAC ARREST [None]
  - HYPOTENSION [None]
